FAERS Safety Report 12948129 (Version 1)
Quarter: 2016Q4

REPORT INFORMATION
  Report Type: Spontaneous
  Country: US (occurrence: US)
  Receive Date: 20161117
  Receipt Date: 20161117
  Transmission Date: 20170207
  Serious: No
  Sender: FDA-Public Use
  Company Number: US-ASTRAZENECA-2016SF19509

PATIENT
  Age: 52 Year
  Sex: Female
  Weight: 93 kg

DRUGS (32)
  1. LORAZEPAM. [Concomitant]
     Active Substance: LORAZEPAM
     Indication: INSOMNIA
     Dosage: 0.5MG AS REQUIRED
     Route: 048
     Dates: start: 201607
  2. ZYRTEC [Concomitant]
     Active Substance: CETIRIZINE HYDROCHLORIDE
     Indication: MULTIPLE ALLERGIES
     Route: 048
     Dates: start: 2011
  3. DICLOFENAC MISOPROSTOL [Suspect]
     Active Substance: DICLOFENAC SODIUM\MISOPROSTOL
     Indication: ARTHRALGIA
     Dosage: 50/200TB, AS REQUIRED
     Route: 048
  4. LIDOCAINE PATCH [Concomitant]
     Active Substance: LIDOCAINE
     Indication: PAIN
     Dosage: 5.0% AS REQUIRED
     Route: 061
  5. ACETAMINOPHINE COD [Concomitant]
     Indication: TOOTHACHE
     Dosage: AS REQUIRED
     Route: 048
  6. CYCLOBENZAPRINE [Concomitant]
     Active Substance: CYCLOBENZAPRINE
     Indication: ARTHRALGIA
     Dosage: 5.0MG AS REQUIRED
     Route: 048
  7. ONDANSETRON ODT [Concomitant]
     Active Substance: ONDANSETRON
     Indication: ARTHRALGIA
     Dosage: 8.0MG AS REQUIRED
     Route: 048
  8. DIPHENOXYLATE ATROPINE [Concomitant]
     Indication: DIARRHOEA
     Dosage: AS REQUIRED
     Route: 048
  9. ATACAND [Suspect]
     Active Substance: CANDESARTAN CILEXETIL
     Indication: HYPERTENSION
     Route: 048
     Dates: start: 201603
  10. MONTELUKAST [Concomitant]
     Active Substance: MONTELUKAST SODIUM
     Indication: ASTHMA
     Route: 048
     Dates: start: 2012
  11. ACID REDUCER [Concomitant]
     Indication: IRRITABLE BOWEL SYNDROME
     Dosage: ONE TABLET, AS REQUIRED
     Route: 048
  12. MONTELUKAST [Concomitant]
     Active Substance: MONTELUKAST SODIUM
     Indication: MULTIPLE ALLERGIES
     Route: 048
     Dates: start: 2012
  13. XOPENEX HFA [Concomitant]
     Active Substance: LEVALBUTEROL TARTRATE
     Indication: ASTHMA
     Dosage: AS REQUIRED
     Route: 055
  14. ACID REDUCER [Concomitant]
     Indication: GASTRIC DISORDER
     Dosage: ONE TABLET, AS REQUIRED
     Route: 048
  15. ATACAND [Suspect]
     Active Substance: CANDESARTAN CILEXETIL
     Indication: HYPERTENSION
     Route: 048
     Dates: start: 2014, end: 201603
  16. ATACAND [Suspect]
     Active Substance: CANDESARTAN CILEXETIL
     Indication: HYPERTENSION
     Route: 048
     Dates: start: 201603
  17. HYOSCYAMINE. [Concomitant]
     Active Substance: HYOSCYAMINE
     Indication: ABDOMINAL PAIN
     Dosage: 0.125MG AS REQUIRED
     Route: 048
  18. TRAMADOL. [Concomitant]
     Active Substance: TRAMADOL
     Indication: ARTHRALGIA
     Dosage: 50.0MG AS REQUIRED
     Route: 048
     Dates: start: 2012
  19. VALACYCLOVIR HCL [Concomitant]
     Active Substance: VALACYCLOVIR HYDROCHLORIDE
     Indication: PROPHYLAXIS
     Route: 048
  20. MELOXICAM. [Concomitant]
     Active Substance: MELOXICAM
     Indication: ASTHMA
     Route: 048
  21. HYDROCODONE ACETAMINOPHINE [Concomitant]
     Indication: ARTHRALGIA
     Dosage: AS REQUIRED
     Route: 048
  22. ACID REDUCER [Concomitant]
     Indication: HERNIA
     Dosage: ONE TABLET, AS REQUIRED
     Route: 048
  23. DICLOFENAC MISOPROSTOL [Suspect]
     Active Substance: DICLOFENAC SODIUM\MISOPROSTOL
     Indication: ARTHRALGIA
     Dosage: 50/200TB, AS REQUIRED
     Route: 048
  24. HYOSCYAMINE. [Concomitant]
     Active Substance: HYOSCYAMINE
     Indication: ABDOMINAL PAIN UPPER
     Dosage: 0.125MG AS REQUIRED
     Route: 048
  25. PROMETHAZINE [Concomitant]
     Active Substance: PROMETHAZINE\PROMETHAZINE HYDROCHLORIDE
     Indication: NAUSEA
     Dosage: 25.0MG AS REQUIRED
     Route: 048
  26. LIDOCAINE PATCH [Concomitant]
     Active Substance: LIDOCAINE
     Indication: ARTHRALGIA
     Dosage: 5.0% AS REQUIRED
     Route: 061
  27. LEVOFLOXACIN. [Concomitant]
     Active Substance: LEVOFLOXACIN
     Indication: BRONCHITIS
     Dosage: 250.0MG AS REQUIRED
     Route: 048
     Dates: start: 2016
  28. HYDROCODONE ACETAMINOPHINE [Concomitant]
     Indication: BACK PAIN
     Dosage: AS REQUIRED
     Route: 048
  29. MELOXICAM. [Concomitant]
     Active Substance: MELOXICAM
     Indication: HYPERSENSITIVITY
     Route: 048
  30. NAPROXEN. [Concomitant]
     Active Substance: NAPROXEN
     Dosage: UNKNOWN
     Route: 065
     Dates: end: 2016
  31. FLEXERIL [Concomitant]
     Active Substance: CYCLOBENZAPRINE HYDROCHLORIDE
     Dosage: UNKNOWN
     Route: 065
     Dates: end: 2016
  32. SERTRALINE HCL [Concomitant]
     Active Substance: SERTRALINE HYDROCHLORIDE
     Indication: ANXIETY
     Route: 048
     Dates: start: 2006

REACTIONS (12)
  - Localised infection [Unknown]
  - Diverticulitis [Unknown]
  - Hernia [Unknown]
  - Bronchitis [Unknown]
  - Coeliac disease [Unknown]
  - Ulcer [Unknown]
  - Paraesthesia oral [Unknown]
  - Throat tightness [Unknown]
  - Irritable bowel syndrome [Unknown]
  - Malaise [Unknown]
  - Weight decreased [Unknown]
  - Abdominal discomfort [Unknown]

NARRATIVE: CASE EVENT DATE: 2016
